FAERS Safety Report 20817187 (Version 2)
Quarter: 2022Q2

REPORT INFORMATION
  Report Type: Spontaneous
  Country: BR (occurrence: BR)
  Receive Date: 20220512
  Receipt Date: 20220603
  Transmission Date: 20220720
  Serious: Yes (Other)
  Sender: FDA-Public Use
  Company Number: BR-CELLTRION INC.-2022BR006233

PATIENT

DRUGS (4)
  1. INFLIXIMAB [Suspect]
     Active Substance: INFLIXIMAB
     Indication: Colitis
     Dosage: 4 AMPOLES WITH 350ML EVERY 6 WEEKS; LAST INFUSION: 13 APR 2022
     Route: 042
     Dates: start: 2010
  2. INFLIXIMAB [Suspect]
     Active Substance: INFLIXIMAB
     Indication: Spondylitis
  3. GLICLAZIDE [Concomitant]
     Active Substance: GLICLAZIDE
     Indication: Type 1 diabetes mellitus
     Dosage: 60 MG, DAILY (DATE OF ADMINISTRATION: ONE YEAR AGO / STILL IN USE)
     Route: 048
  4. ZOLPIDEM [Concomitant]
     Active Substance: ZOLPIDEM TARTRATE
     Indication: Somnolence
     Dosage: 10MG - 1 PILL PER NIGHT (STARTED 4 MONTHS AGO / STILL IN USE)
     Route: 048

REACTIONS (4)
  - Nephrolithiasis [Unknown]
  - Surgery [Not Recovered/Not Resolved]
  - Fatigue [Recovered/Resolved]
  - Intentional dose omission [Unknown]

NARRATIVE: CASE EVENT DATE: 20220426
